FAERS Safety Report 9124741 (Version 6)
Quarter: 2016Q4

REPORT INFORMATION
  Report Type: Spontaneous
  Country: US (occurrence: US)
  Receive Date: 20130116
  Receipt Date: 20161215
  Transmission Date: 20170207
  Serious: Yes (Disabling, Other)
  Sender: FDA-Public Use
  Company Number: US-BAYER-2013-004932

PATIENT
  Age: 34 Year
  Sex: Female
  Weight: 65.31 kg

DRUGS (10)
  1. HYDROCODONE [Concomitant]
     Active Substance: HYDROCODONE
     Indication: PAIN
  2. CIPRO [Suspect]
     Active Substance: CIPROFLOXACIN HYDROCHLORIDE
     Indication: INFECTION
     Dosage: UNK
     Dates: start: 20121204
  3. CIPRO [Suspect]
     Active Substance: CIPROFLOXACIN HYDROCHLORIDE
     Indication: INFECTION
     Dosage: UNK
     Dates: start: 2012
  4. CIPRO [Suspect]
     Active Substance: CIPROFLOXACIN HYDROCHLORIDE
     Indication: INFECTION
     Dosage: UNK
     Dates: start: 2009, end: 20121112
  5. AMITRIPTYLIN [Concomitant]
     Active Substance: AMITRIPTYLINE
     Indication: DEPRESSION
     Dosage: UNK
     Dates: start: 201212
  6. CIPRO [Suspect]
     Active Substance: CIPROFLOXACIN HYDROCHLORIDE
     Indication: APPENDICECTOMY
     Dosage: 500 MG, BID
     Route: 048
     Dates: start: 20121130
  7. CIPRO [Suspect]
     Active Substance: CIPROFLOXACIN HYDROCHLORIDE
     Indication: URINARY TRACT INFECTION
     Dosage: UNK
     Dates: start: 20100709
  8. HYDROCODONE [Concomitant]
     Active Substance: HYDROCODONE
     Indication: APPENDICECTOMY
     Dosage: UNK
     Dates: start: 201211
  9. METRONIDAZOLE. [Concomitant]
     Active Substance: METRONIDAZOLE
     Dosage: UNK
     Dates: start: 201212
  10. FLAGYL [Concomitant]
     Active Substance: METRONIDAZOLE\METRONIDAZOLE HYDROCHLORIDE
     Indication: APPENDICECTOMY
     Dosage: UNK
     Dates: start: 2012

REACTIONS (21)
  - Musculoskeletal disorder [None]
  - Injury [None]
  - Neuropathy peripheral [Not Recovered/Not Resolved]
  - Adverse drug reaction [None]
  - Emotional distress [None]
  - Anxiety [None]
  - Toxicity to various agents [None]
  - Polymyalgia rheumatica [None]
  - Hypoaesthesia [None]
  - Asthenia [None]
  - Muscle strain [None]
  - Pain [None]
  - Paraesthesia [None]
  - Weight decreased [None]
  - Tinnitus [None]
  - Headache [None]
  - Tendon pain [None]
  - Tendon disorder [None]
  - Neuralgia [None]
  - Arthralgia [None]
  - Nervous system disorder [None]

NARRATIVE: CASE EVENT DATE: 201212
